FAERS Safety Report 7532006-8 (Version None)
Quarter: 2011Q2

REPORT INFORMATION
  Report Type: 
  Country: None (occurrence: None)
  Receive Date: 20110608
  Receipt Date: 20110525
  Transmission Date: 20111010
  Serious: Yes (Other)
  Sender: FDA-Public Use
  Company Number: PHHY2010US18174

PATIENT
  Sex: Male
  Weight: 90.703 kg

DRUGS (4)
  1. REGLAN [Suspect]
  2. TRAZODONE HCL [Concomitant]
  3. GLEEVEC [Suspect]
     Indication: CHRONIC MYELOID LEUKAEMIA
     Dosage: 400 MG, DAILY
     Route: 048
     Dates: start: 20100301
  4. ZOFRAN [Concomitant]

REACTIONS (7)
  - MUSCLE SPASMS [None]
  - SUICIDAL IDEATION [None]
  - VOMITING [None]
  - NAUSEA [None]
  - ANXIETY [None]
  - OEDEMA PERIPHERAL [None]
  - DIARRHOEA [None]
